FAERS Safety Report 20690283 (Version 1)
Quarter: 2022Q2

REPORT INFORMATION
  Report Type: Spontaneous
  Country: JP (occurrence: JP)
  Receive Date: 20220408
  Receipt Date: 20220408
  Transmission Date: 20220721
  Serious: Yes (Other)
  Sender: FDA-Public Use
  Company Number: JP-BAYER-2022A050293

PATIENT
  Age: 50 Year
  Sex: Male

DRUGS (1)
  1. STIVARGA [Suspect]
     Active Substance: REGORAFENIB
     Indication: Colon cancer
     Dosage: DAILY DOSE 120 MG
     Route: 048
     Dates: start: 20220301, end: 20220406

REACTIONS (2)
  - Colon cancer [Not Recovered/Not Resolved]
  - Off label use [None]

NARRATIVE: CASE EVENT DATE: 20220301
